FAERS Safety Report 6579890-2 (Version None)
Quarter: 2010Q1

REPORT INFORMATION
  Report Type: 
  Country: None (occurrence: None)
  Receive Date: 20100212
  Receipt Date: 20100201
  Transmission Date: 20100710
  Serious: Yes (Other)
  Sender: FDA-Public Use
  Company Number: JP-ELI_LILLY_AND_COMPANY-JP201001005142

PATIENT
  Age: 69 Year
  Sex: Female

DRUGS (4)
  1. EVISTA [Suspect]
     Indication: OSTEOPOROSIS POSTMENOPAUSAL
     Dosage: 60 MG, DAILY (1/D)
     Route: 048
  2. EPADEL [Concomitant]
     Route: 048
  3. ONEALFA [Concomitant]
     Route: 048
  4. ALLEGRA [Concomitant]
     Route: 048

REACTIONS (1)
  - LIVER DISORDER [None]
